FAERS Safety Report 8312948-6 (Version None)
Quarter: 2012Q2

REPORT INFORMATION
  Report Type: 
  Country: None (occurrence: None)
  Receive Date: 20120426
  Receipt Date: 20120417
  Transmission Date: 20120825
  Serious: Yes (Hospitalization)
  Sender: FDA-Public Use
  Company Number: BR-US-EMD SERONO, INC.-7117330

PATIENT
  Sex: Female

DRUGS (7)
  1. ANAFRANIL [Concomitant]
     Indication: PRODUCT USED FOR UNKNOWN INDICATION
  2. REBIF [Suspect]
     Indication: RELAPSING-REMITTING MULTIPLE SCLEROSIS
     Dates: start: 20100319
  3. VAGOSTESYL (VAGOSTABYL ) [Concomitant]
     Indication: PRODUCT USED FOR UNKNOWN INDICATION
  4. CAPTOPRIL [Concomitant]
     Indication: PRODUCT USED FOR UNKNOWN INDICATION
  5. VITAMIN B COMPLEX CAP [Concomitant]
     Indication: PRODUCT USED FOR UNKNOWN INDICATION
  6. IMOSEC [Concomitant]
     Indication: PRODUCT USED FOR UNKNOWN INDICATION
  7. CITALOPRAM HYDROBROMIDE [Concomitant]
     Indication: PRODUCT USED FOR UNKNOWN INDICATION

REACTIONS (9)
  - FALL [None]
  - DECREASED APPETITE [None]
  - DECUBITUS ULCER [None]
  - PAIN IN EXTREMITY [None]
  - FEMUR FRACTURE [None]
  - MULTIPLE SCLEROSIS RELAPSE [None]
  - WEIGHT DECREASED [None]
  - PAIN [None]
  - INJECTION SITE ERYTHEMA [None]
